FAERS Safety Report 23992823 (Version 2)
Quarter: 2025Q1

REPORT INFORMATION
  Report Type: Other
  Country: US (occurrence: US)
  Receive Date: 20240620
  Receipt Date: 20250130
  Transmission Date: 20250408
  Serious: No
  Sender: LABORATOIRES SERB
  Company Number: US-SERB S.A.S.-2158341

PATIENT
  Age: 39 Year
  Sex: Female

DRUGS (4)
  1. VISTOGARD [Suspect]
     Active Substance: URIDINE TRIACETATE
     Indication: Mucosal inflammation
  2. VISTOGARD [Suspect]
     Active Substance: URIDINE TRIACETATE
     Indication: Chemotherapy toxicity attenuation
  3. VISTOGARD [Suspect]
     Active Substance: URIDINE TRIACETATE
     Indication: Palmar-plantar erythrodysaesthesia syndrome
  4. CAPECITABINE [Suspect]
     Active Substance: CAPECITABINE

REACTIONS (2)
  - Diarrhoea [Unknown]
  - Muscle spasms [Unknown]
